FAERS Safety Report 12182280 (Version 1)
Quarter: 2016Q1

REPORT INFORMATION
  Report Type: Spontaneous
  Country: US (occurrence: US)
  Receive Date: 20160316
  Receipt Date: 20160316
  Transmission Date: 20160526
  Serious: Yes (Life-Threatening, Hospitalization)
  Sender: FDA-Public Use
  Company Number: US-CIPLA LTD.-2016US02337

PATIENT

DRUGS (1)
  1. LAMOTRIGINE. [Suspect]
     Active Substance: LAMOTRIGINE
     Dosage: UNK
     Route: 048

REACTIONS (9)
  - Generalised tonic-clonic seizure [Unknown]
  - Supraventricular tachycardia [Unknown]
  - Brain injury [Unknown]
  - Overdose [Unknown]
  - Circulatory collapse [Unknown]
  - Tachycardia [Unknown]
  - Status epilepticus [Unknown]
  - Brain oedema [Unknown]
  - Cardiac arrest [Unknown]
